FAERS Safety Report 17995518 (Version 1)
Quarter: 2020Q3

REPORT INFORMATION
  Report Type: Spontaneous
  Country: US (occurrence: US)
  Receive Date: 20200708
  Receipt Date: 20200708
  Transmission Date: 20201103
  Serious: Yes (Hospitalization, Other)
  Sender: FDA-Public Use
  Company Number: US-NAPPMUNDI-USA-2020-0155847

PATIENT
  Sex: Female

DRUGS (1)
  1. OXYCONTIN [Suspect]
     Active Substance: OXYCODONE HYDROCHLORIDE
     Indication: PAIN
     Dosage: UNK
     Route: 048

REACTIONS (11)
  - Hospitalisation [Unknown]
  - Respiratory distress [Unknown]
  - Cerebral disorder [Unknown]
  - Product prescribing issue [Unknown]
  - Drug dependence [Unknown]
  - Coma [Unknown]
  - Oxygen consumption decreased [Unknown]
  - Overdose [Unknown]
  - Drug withdrawal syndrome [Unknown]
  - Road traffic accident [Unknown]
  - Pain [Unknown]
